FAERS Safety Report 24879452 (Version 2)
Quarter: 2025Q4

REPORT INFORMATION
  Report Type: Report from Study
  Country: US (occurrence: US)
  Receive Date: 20250123
  Receipt Date: 20251126
  Transmission Date: 20260117
  Serious: No
  Sender: SANOFI AVENTIS
  Company Number: US-SA-2025SA022070

PATIENT
  Age: 72 Year
  Sex: Male

DRUGS (2)
  1. DRONEDARONE [Suspect]
     Active Substance: DRONEDARONE
     Indication: Supraventricular tachycardia
     Dosage: 400 MG, BID
     Route: 048
  2. DRONEDARONE [Suspect]
     Active Substance: DRONEDARONE
     Indication: Ventricular extrasystoles
     Dosage: 800 MG, BID
     Route: 048

REACTIONS (1)
  - Off label use [Unknown]
